FAERS Safety Report 5221508-5 (Version None)
Quarter: 2007Q1

REPORT INFORMATION
  Report Type: 
  Country: None (occurrence: None)
  Receive Date: 20070126
  Receipt Date: 20070117
  Transmission Date: 20070707
  Serious: Yes (Hospitalization)
  Sender: FDA-Public Use
  Company Number: FR-PFIZER INC-2007005392

PATIENT
  Sex: Female
  Weight: 45 kg

DRUGS (6)
  1. CELEBREX [Suspect]
     Dosage: DAILY DOSE:200MG
     Route: 048
     Dates: start: 20061128, end: 20061130
  2. PHENYLBUTAZONE [Suspect]
     Route: 048
     Dates: start: 20061106, end: 20061127
  3. HYDROXYCHLOROQUINE SULFATE [Concomitant]
     Route: 048
     Dates: start: 20061128, end: 20061130
  4. KETOPROFEN [Concomitant]
  5. NAPROXEN [Concomitant]
  6. PREDNISONE [Concomitant]

REACTIONS (6)
  - ALANINE AMINOTRANSFERASE INCREASED [None]
  - ASPARTATE AMINOTRANSFERASE INCREASED [None]
  - BLOOD ALKALINE PHOSPHATASE INCREASED [None]
  - EOSINOPHILIA [None]
  - HYPERSENSITIVITY [None]
  - RASH [None]
